FAERS Safety Report 9856456 (Version 1)
Quarter: 2014Q1

REPORT INFORMATION
  Report Type: Spontaneous
  Country: US (occurrence: US)
  Receive Date: 20140130
  Receipt Date: 20140130
  Transmission Date: 20141002
  Serious: Yes (Other)
  Sender: FDA-Public Use
  Company Number: CHPA2014US001418

PATIENT
  Age: 31 Year
  Sex: Female

DRUGS (1)
  1. VOLTAREN GEL [Suspect]
     Indication: ARTHRITIS
     Dosage: UNK
     Route: 061
     Dates: start: 20140122, end: 20140122

REACTIONS (5)
  - Local swelling [Recovered/Resolved]
  - Erythema [Recovered/Resolved]
  - Pain in extremity [Unknown]
  - Underdose [Unknown]
  - Drug dispensed to wrong patient [Unknown]
